FAERS Safety Report 25534271 (Version 5)
Quarter: 2025Q3

REPORT INFORMATION
  Report Type: Spontaneous
  Country: US (occurrence: US)
  Receive Date: 20250709
  Receipt Date: 20250822
  Transmission Date: 20251020
  Serious: No
  Sender: PFIZER
  Company Number: US-PFIZER INC-202500125184

PATIENT
  Age: 12 Year
  Sex: Male

DRUGS (2)
  1. GENOTROPIN [Suspect]
     Active Substance: SOMATROPIN
     Indication: Blood growth hormone abnormal
     Dosage: 1 MG, DAILY
     Dates: start: 20250628
  2. GENOTROPIN [Suspect]
     Active Substance: SOMATROPIN
     Dosage: 1 MG, DAILY
     Dates: start: 202506

REACTIONS (5)
  - Wrong technique in device usage process [Unknown]
  - Incorrect dose administered by device [Unknown]
  - Device information output issue [Unknown]
  - Drug dose omission by device [Unknown]
  - Device leakage [Unknown]

NARRATIVE: CASE EVENT DATE: 20250601
